FAERS Safety Report 15065460 (Version 2)
Quarter: 2018Q3

REPORT INFORMATION
  Report Type: Report from Study
  Country: US (occurrence: US)
  Receive Date: 20180626
  Receipt Date: 20180703
  Transmission Date: 20181010
  Serious: Yes (Other)
  Sender: FDA-Public Use
  Company Number: US-ROCHE-2126652

PATIENT
  Age: 63 Year
  Sex: Female
  Weight: 89.89 kg

DRUGS (2)
  1. OCREVUS [Suspect]
     Active Substance: OCRELIZUMAB
     Dosage: ONGOING NO; 2ND OCREVUS INFUSION
     Route: 042
     Dates: start: 20180522, end: 20180522
  2. OCREVUS [Suspect]
     Active Substance: OCRELIZUMAB
     Indication: MULTIPLE SCLEROSIS
     Dosage: ONGOING: UNKNOWN
     Route: 042
     Dates: start: 20180508, end: 20180508

REACTIONS (5)
  - Respiratory tract infection viral [Recovered/Resolved]
  - Eczema [Recovered/Resolved]
  - Orthopnoea [Recovered/Resolved]
  - Cough [Recovered/Resolved]
  - Eczema [Recovered/Resolved]

NARRATIVE: CASE EVENT DATE: 20180602
